FAERS Safety Report 4349774-9 (Version None)
Quarter: 2004Q2

REPORT INFORMATION
  Report Type: 
  Country: None (occurrence: None)
  Receive Date: 20040426
  Receipt Date: 20040414
  Transmission Date: 20050107
  Serious: Yes (Hospitalization)
  Sender: FDA-Public Use
  Company Number: HQWYE471102MAR04

PATIENT
  Age: 43 Year
  Sex: Female
  Weight: 81.72 kg

DRUGS (3)
  1. ADVIL [Suspect]
     Indication: EYE PRURITUS
     Dosage: 1 TABLET 1 X PER 1 DAY, ORAL
     Route: 048
     Dates: start: 20040216, end: 20040216
  2. ADVIL [Suspect]
     Indication: LACRIMATION INCREASED
     Dosage: 1 TABLET 1 X PER 1 DAY, ORAL
     Route: 048
     Dates: start: 20040216, end: 20040216
  3. ADVIL [Suspect]
     Indication: SINUS HEADACHE
     Dosage: 1 TABLET 1 X PER 1 DAY, ORAL
     Route: 048
     Dates: start: 20040216, end: 20040216

REACTIONS (7)
  - HYPERHIDROSIS [None]
  - HYPERSENSITIVITY [None]
  - MUSCLE SPASMS [None]
  - MUSCLE TIGHTNESS [None]
  - SUBARACHNOID HAEMORRHAGE [None]
  - THROAT TIGHTNESS [None]
  - VOMITING [None]
